FAERS Safety Report 7985144-X (Version None)
Quarter: 2011Q4

REPORT INFORMATION
  Report Type: 
  Country: None (occurrence: None)
  Receive Date: 20111216
  Receipt Date: 20111208
  Transmission Date: 20120403
  Serious: No
  Sender: FDA-Public Use
  Company Number: FR-NOVOPROD-337168

PATIENT

DRUGS (6)
  1. GLUCOPHAGE [Concomitant]
     Dosage: 2 G, QD
     Route: 048
     Dates: start: 20010101
  2. FLODIL                             /00641902/ [Concomitant]
     Dosage: 5 MG, QD
     Route: 048
     Dates: start: 20010101
  3. ASPIRIN [Concomitant]
     Dosage: 160 MG, QD
     Route: 048
     Dates: start: 20010101
  4. VICTOZA [Suspect]
     Indication: TYPE 2 DIABETES MELLITUS
     Dosage: 1.2 MG, QD
     Route: 058
     Dates: start: 20110301, end: 20111205
  5. AMARYL [Concomitant]
     Dosage: 6 MG, QD
     Route: 048
     Dates: start: 20080101
  6. ZESTORETIC [Concomitant]
     Dosage: 32.5 MG, QD
     Route: 048
     Dates: start: 20010101

REACTIONS (1)
  - HYPERGLYCAEMIA [None]
